FAERS Safety Report 9860936 (Version 1)
Quarter: 2014Q1

REPORT INFORMATION
  Report Type: Spontaneous
  Country: CL (occurrence: CL)
  Receive Date: 20140202
  Receipt Date: 20140202
  Transmission Date: 20141002
  Serious: No
  Sender: FDA-Public Use
  Company Number: CL-ALLERGAN-1302511US

PATIENT
  Age: 60 Year
  Sex: Male

DRUGS (3)
  1. BOTOX [Suspect]
     Indication: SKIN WRINKLING
     Dosage: 24 UNITS, SINGLE
     Route: 030
     Dates: start: 20130201, end: 20130201
  2. ASPIRIN [Concomitant]
  3. MULTIVITAMIN A AND B COMPLEX [Concomitant]
     Indication: SUPPLEMENTATION THERAPY

REACTIONS (2)
  - Blepharochalasis [Unknown]
  - Eyelid ptosis [Unknown]
